FAERS Safety Report 4873824-4 (Version None)
Quarter: 2006Q1

REPORT INFORMATION
  Report Type: 
  Country: None (occurrence: None)
  Receive Date: 20060104
  Receipt Date: 20051221
  Transmission Date: 20060701
  Serious: Yes (Hospitalization)
  Sender: FDA-Public Use
  Company Number: 219597

PATIENT
  Age: 66 Year
  Sex: Male

DRUGS (6)
  1. RAPTIVA [Suspect]
     Indication: PSORIASIS
     Dates: start: 20050301
  2. ASPIRIN [Concomitant]
  3. ATENOLOL [Concomitant]
  4. NORVASC [Concomitant]
  5. AVAPRO [Concomitant]
  6. PROTONIX [Concomitant]

REACTIONS (3)
  - ACTINOMYCOSIS [None]
  - SUBDURAL EMPYEMA [None]
  - SUBDURAL HAEMATOMA [None]
